FAERS Safety Report 7774838-7 (Version None)
Quarter: 2011Q3

REPORT INFORMATION
  Report Type: 
  Country: None (occurrence: None)
  Receive Date: 20110923
  Receipt Date: 20110914
  Transmission Date: 20111222
  Serious: Yes (Hospitalization, Other)
  Sender: FDA-Public Use
  Company Number: GB-JNJFOC-20110906411

PATIENT
  Age: 52 Year
  Sex: Male

DRUGS (6)
  1. CODEINE PHOSPHATE / PARACETAMOL [Concomitant]
     Route: 065
  2. CLARITHROMYCIN [Concomitant]
     Route: 065
  3. ANTINEOPLASTIC AGENTS [Concomitant]
     Indication: ACUTE PROMYELOCYTIC LEUKAEMIA
     Route: 065
  4. CITALOPRAM HYDROBROMIDE [Concomitant]
     Route: 065
  5. LEVOFLOXACIN [Suspect]
     Indication: LOWER RESPIRATORY TRACT INFECTION
     Route: 048
     Dates: start: 20110829
  6. TRISENOX [Concomitant]
     Route: 065

REACTIONS (3)
  - PAIN [None]
  - SWELLING [None]
  - TENDONITIS [None]
